FAERS Safety Report 7444269-8 (Version None)
Quarter: 2011Q2

REPORT INFORMATION
  Report Type: 
  Country: None (occurrence: None)
  Receive Date: 20110419
  Receipt Date: 20110413
  Transmission Date: 20111010
  Serious: Yes (Hospitalization)
  Sender: FDA-Public Use
  Company Number: ABR_00027_2011

PATIENT
  Sex: Male

DRUGS (7)
  1. FENOFIBRATE [Suspect]
     Indication: XANTHOMATOSIS
     Dosage: ((1 DOSAGE FORMS, 1 IN 1 D))
  2. MEROPENEM [Suspect]
     Indication: PRODUCT USED FOR UNKNOWN INDICATION
     Dosage: (DF)
     Dates: start: 20100502
  3. ACETAMINOPHEN [Suspect]
     Indication: PRODUCT USED FOR UNKNOWN INDICATION
     Dosage: (DF)
     Dates: start: 20100502
  4. ROSUVASTATIN CALCIUM [Suspect]
     Indication: PRODUCT USED FOR UNKNOWN INDICATION
     Dosage: ((10 MG, 1 IN 1 D))
  5. NYSTATIN [Suspect]
     Indication: PRODUCT USED FOR UNKNOWN INDICATION
     Dosage: (DF)
     Dates: start: 20100502
  6. ERYTHROMYCIN [Suspect]
     Indication: PRODUCT USED FOR UNKNOWN INDICATION
     Dosage: (DF)
     Dates: start: 20100502
  7. PANTOPRAZOLE [Suspect]
     Indication: PRODUCT USED FOR UNKNOWN INDICATION
     Dosage: (DF)
     Dates: start: 20100502

REACTIONS (5)
  - RHABDOMYOLYSIS [None]
  - DRUG EFFECT DECREASED [None]
  - PANCREATITIS [None]
  - RENAL FAILURE [None]
  - SEPSIS [None]
